FAERS Safety Report 5388849-2 (Version None)
Quarter: 2007Q3

REPORT INFORMATION
  Report Type: 
  Country: None (occurrence: None)
  Receive Date: 20070712
  Receipt Date: 20070702
  Transmission Date: 20080115
  Serious: Yes (Other)
  Sender: FDA-Public Use
  Company Number: 20070164 /

PATIENT
  Age: 64 Year
  Sex: Female
  Weight: 110.2241 kg

DRUGS (1)
  1. CYANOCOBALAMIN [Suspect]
     Indication: PERNICIOUS ANAEMIA
     Dosage: INTRAMUSCULAR
     Route: 030
     Dates: start: 20061101, end: 20070501

REACTIONS (1)
  - THERAPEUTIC RESPONSE DECREASED [None]
